FAERS Safety Report 12687500 (Version 1)
Quarter: 2016Q3

REPORT INFORMATION
  Report Type: Report from Study
  Country: CH (occurrence: CH)
  Receive Date: 20160826
  Receipt Date: 20160826
  Transmission Date: 20161109
  Serious: Yes (Congenital Anomaly, Other)
  Sender: FDA-Public Use
  Company Number: CH-SUN PHARMACEUTICAL INDUSTRIES LTD-2016RR-122640

PATIENT

DRUGS (3)
  1. HYDROXYCHLOROQUINE [Suspect]
     Active Substance: HYDROXYCHLOROQUINE
     Indication: PRODUCT USED FOR UNKNOWN INDICATION
     Dosage: FROM 0 GW
     Route: 064
  2. CITALOPRAM [Suspect]
     Active Substance: CITALOPRAM HYDROBROMIDE
     Indication: PRODUCT USED FOR UNKNOWN INDICATION
     Dosage: 0-40 GW
     Route: 064
  3. CHLORPROMAZINE. [Suspect]
     Active Substance: CHLORPROMAZINE
     Indication: PRODUCT USED FOR UNKNOWN INDICATION
     Dosage: FROM 0 GW
     Route: 064

REACTIONS (3)
  - Cardiac murmur [Unknown]
  - Foetal exposure during pregnancy [Unknown]
  - Heart valve incompetence [Unknown]
